FAERS Safety Report 24895582 (Version 2)
Quarter: 2025Q1

REPORT INFORMATION
  Report Type: Spontaneous
  Country: US (occurrence: US)
  Receive Date: 20250128
  Receipt Date: 20250304
  Transmission Date: 20250408
  Serious: No
  Sender: BIOGEN
  Company Number: US-BIOGEN-2024BI01250399

PATIENT
  Sex: Female

DRUGS (44)
  1. AVONEX [Suspect]
     Active Substance: INTERFERON BETA-1A
     Indication: Multiple sclerosis
     Route: 050
     Dates: start: 19960201, end: 20150324
  2. AVONEX [Suspect]
     Active Substance: INTERFERON BETA-1A
     Route: 050
     Dates: start: 20170828
  3. AVONEX [Suspect]
     Active Substance: INTERFERON BETA-1A
  4. AVONEX [Suspect]
     Active Substance: INTERFERON BETA-1A
  5. AVONEX [Suspect]
     Active Substance: INTERFERON BETA-1A
  6. AVONEX [Suspect]
     Active Substance: INTERFERON BETA-1A
  7. AVONEX [Suspect]
     Active Substance: INTERFERON BETA-1A
  8. AVONEX [Suspect]
     Active Substance: INTERFERON BETA-1A
  9. AVONEX [Suspect]
     Active Substance: INTERFERON BETA-1A
  10. AVONEX [Suspect]
     Active Substance: INTERFERON BETA-1A
  11. AVONEX [Suspect]
     Active Substance: INTERFERON BETA-1A
  12. AVONEX [Suspect]
     Active Substance: INTERFERON BETA-1A
  13. AVONEX [Suspect]
     Active Substance: INTERFERON BETA-1A
  14. AVONEX [Suspect]
     Active Substance: INTERFERON BETA-1A
     Indication: Multiple sclerosis
     Route: 050
  15. AVONEX [Suspect]
     Active Substance: INTERFERON BETA-1A
  16. AVONEX [Suspect]
     Active Substance: INTERFERON BETA-1A
  17. AVONEX [Suspect]
     Active Substance: INTERFERON BETA-1A
  18. LINZESS [Concomitant]
     Active Substance: LINACLOTIDE
     Route: 050
  19. ASPIRIN [Concomitant]
     Active Substance: ASPIRIN
     Route: 050
  20. HERBALS\PLANTAGO INDICA WHOLE [Concomitant]
     Active Substance: HERBALS\PLANTAGO INDICA WHOLE
     Route: 050
  21. MILK OF MAGNESIA [Concomitant]
     Active Substance: MAGNESIUM HYDROXIDE
     Route: 050
  22. MIRALAX [Concomitant]
     Active Substance: POLYETHYLENE GLYCOL 3350
     Route: 050
  23. TUMS [Concomitant]
     Active Substance: CALCIUM CARBONATE
     Route: 050
  24. TIZANIDINE HYDROCHLORIDE [Concomitant]
     Active Substance: TIZANIDINE HYDROCHLORIDE
     Route: 050
  25. METHOCARBAMO [Concomitant]
     Route: 050
  26. OXYCONTIN [Concomitant]
     Active Substance: OXYCODONE HYDROCHLORIDE
     Route: 050
  27. FUROSEMIDE [Concomitant]
     Active Substance: FUROSEMIDE
     Route: 050
  28. SOLU-MEDROL [Concomitant]
     Active Substance: METHYLPREDNISOLONE SODIUM SUCCINATE
     Route: 050
  29. FENOFIBRATE [Concomitant]
     Active Substance: FENOFIBRATE
     Route: 050
  30. AMLODIPINE [Concomitant]
     Active Substance: AMLODIPINE BESYLATE
     Route: 050
  31. OMEPRAZOLE [Concomitant]
     Active Substance: OMEPRAZOLE
     Route: 050
  32. GABAPENTIN [Concomitant]
     Active Substance: GABAPENTIN
     Route: 050
  33. PRAVASTATIN [Concomitant]
     Active Substance: PRAVASTATIN
     Route: 050
  34. METFORMIN HYDROCHLORIDE [Concomitant]
     Active Substance: METFORMIN HYDROCHLORIDE
     Route: 050
  35. LEVOFLOXACIN [Concomitant]
     Active Substance: LEVOFLOXACIN
     Route: 050
  36. PREDNISONE [Concomitant]
     Active Substance: PREDNISONE
     Route: 050
  37. PROAIR HFA [Concomitant]
     Active Substance: ALBUTEROL SULFATE
     Route: 050
  38. VITAMIN D [Concomitant]
     Active Substance: VITAMIN D NOS
     Route: 050
  39. ALENDRONATE [Concomitant]
     Active Substance: ALENDRONATE SODIUM
     Route: 050
  40. LISINOPRIL [Concomitant]
     Active Substance: LISINOPRIL
     Route: 050
  41. LISINOPRIL [Concomitant]
     Active Substance: LISINOPRIL
     Route: 050
  42. PEG 3350 [Concomitant]
     Active Substance: POLYETHYLENE GLYCOL 3350
     Route: 050
  43. CIPROFLOXACIN [Concomitant]
     Active Substance: CIPROFLOXACIN
     Route: 050
  44. POTASSIUM [Concomitant]
     Active Substance: POTASSIUM
     Route: 050

REACTIONS (10)
  - Illness [Unknown]
  - Multiple sclerosis [Unknown]
  - Cataract [Unknown]
  - Blood pressure abnormal [Unknown]
  - Peripheral swelling [Recovered/Resolved with Sequelae]
  - Fall [Recovered/Resolved]
  - Nausea [Recovered/Resolved with Sequelae]
  - Pain [Recovered/Resolved with Sequelae]
  - Dizziness [Recovered/Resolved with Sequelae]
  - Abdominal pain upper [Unknown]
